FAERS Safety Report 4341014-X (Version None)
Quarter: 2004Q2

REPORT INFORMATION
  Report Type: 
  Country: None (occurrence: None)
  Receive Date: 20040413
  Receipt Date: 20040407
  Transmission Date: 20050107
  Serious: Yes (Hospitalization)
  Sender: FDA-Public Use
  Company Number: KR-JNJFOC-20040401535

PATIENT
  Age: 41 Year
  Sex: Female

DRUGS (1)
  1. KETOCONAZOLE (KETOCONAZOLE ) [Suspect]
     Indication: ONYCHOMYCOSIS
     Dosage: 200 MG, IN 1 DAY,

REACTIONS (13)
  - ANTI-HBC IGG ANTIBODY POSITIVE [None]
  - ASCITES [None]
  - GALLBLADDER OEDEMA [None]
  - HEPATIC CIRRHOSIS [None]
  - HEPATITIS [None]
  - HEPATITIS B ANTIBODY POSITIVE [None]
  - LYMPHADENOPATHY [None]
  - PITTING OEDEMA [None]
  - PROTHROMBIN TIME PROLONGED [None]
  - SCAR [None]
  - SPLENOMEGALY [None]
  - THROMBOCYTOPENIA [None]
  - VARICES OESOPHAGEAL [None]
